FAERS Safety Report 11876836 (Version 1)
Quarter: 2015Q4

REPORT INFORMATION
  Report Type: Spontaneous
  Country: FR (occurrence: FR)
  Receive Date: 20151229
  Receipt Date: 20151229
  Transmission Date: 20160305
  Serious: Yes (Hospitalization)
  Sender: FDA-Public Use
  Company Number: FR-009507513-1512FRA011943

PATIENT
  Age: 50 Year
  Sex: Female

DRUGS (2)
  1. INTRON A [Suspect]
     Active Substance: INTERFERON ALFA-2B
     Dosage: 20 MILLION IU/M2, QD
     Route: 042
     Dates: start: 20150408, end: 20150430
  2. INTRON A [Suspect]
     Active Substance: INTERFERON ALFA-2B
     Dosage: 10 MILLION IU/M2, TIW
     Route: 058
     Dates: start: 20150501, end: 20150824

REACTIONS (1)
  - Scleroderma [Recovering/Resolving]

NARRATIVE: CASE EVENT DATE: 20150618
